FAERS Safety Report 4618331-9 (Version None)
Quarter: 2005Q1

REPORT INFORMATION
  Report Type: 
  Country: None (occurrence: None)
  Receive Date: 20050323
  Receipt Date: 20050314
  Transmission Date: 20050727
  Serious: Yes (Life-Threatening)
  Sender: FDA-Public Use
  Company Number: 2004AP06462

PATIENT
  Age: 75 Year
  Sex: Male
  Weight: 50 kg

DRUGS (6)
  1. ANAPEINE [Suspect]
     Indication: LOCAL ANAESTHESIA
     Dosage: 7.5 MG/ML ONCE SQ
     Route: 058
     Dates: start: 20041227, end: 20041227
  2. ALEVIATIN [Suspect]
     Dosage: 100 ML IV
     Route: 042
     Dates: start: 20041227, end: 20041227
  3. SEVOFLURANE [Concomitant]
  4. PROPOFOL [Concomitant]
  5. MUSCULAX [Concomitant]
  6. LAUGHING GAS [Concomitant]

REACTIONS (9)
  - ANAESTHETIC COMPLICATION [None]
  - BRADYCARDIA [None]
  - DRUG INEFFECTIVE [None]
  - ELECTROCARDIOGRAM QT PROLONGED [None]
  - ELECTROCARDIOGRAM ST SEGMENT DEPRESSION [None]
  - HEART RATE ABNORMAL [None]
  - HYPOTENSION [None]
  - MEDICATION ERROR [None]
  - MYOCARDIAL ISCHAEMIA [None]
